FAERS Safety Report 6693353-5 (Version None)
Quarter: 2010Q2

REPORT INFORMATION
  Report Type: 
  Country: None (occurrence: None)
  Receive Date: 20100420
  Receipt Date: 20100413
  Transmission Date: 20101027
  Serious: Yes (Hospitalization, Other)
  Sender: FDA-Public Use
  Company Number: 2010SP008096

PATIENT
  Age: 68 Year
  Sex: Female
  Weight: 113.3993 kg

DRUGS (4)
  1. PEG-INTRON [Suspect]
     Indication: HEPATITIS C
     Dosage: 150 MCG; QW; SC, 120 MCG; QW; SC
     Route: 058
     Dates: start: 20100119, end: 20100208
  2. PEG-INTRON [Suspect]
     Indication: HEPATITIS C
     Dosage: 150 MCG; QW; SC, 120 MCG; QW; SC
     Route: 058
     Dates: start: 20100104
  3. RIBAVIRIN [Suspect]
     Indication: HEPATITIS C
     Dosage: 1400 MG; QD; PO, 1000 MG; QD; PO
     Route: 048
     Dates: start: 20100119, end: 20100208
  4. RIBAVIRIN [Suspect]
     Indication: HEPATITIS C
     Dosage: 1400 MG; QD; PO, 1000 MG; QD; PO
     Route: 048
     Dates: start: 20100104

REACTIONS (9)
  - BLOOD COUNT ABNORMAL [None]
  - BLOOD CREATINE INCREASED [None]
  - CELLULITIS [None]
  - FLUID RETENTION [None]
  - NASOPHARYNGITIS [None]
  - PULMONARY EMBOLISM [None]
  - RED BLOOD CELL COUNT DECREASED [None]
  - THROMBOSIS [None]
  - WHITE BLOOD CELL COUNT DECREASED [None]
